FAERS Safety Report 6201737-4 (Version None)
Quarter: 2009Q2

REPORT INFORMATION
  Report Type: 
  Country: None (occurrence: None)
  Receive Date: 20090518
  Receipt Date: 20090406
  Transmission Date: 20091009
  Serious: No
  Sender: FDA-Public Use
  Company Number: WAES 0904USA00881

PATIENT
  Age: 66 Year
  Sex: Male
  Weight: 112.9457 kg

DRUGS (7)
  1. JANUVIA [Suspect]
     Indication: TYPE 2 DIABETES MELLITUS
     Dosage: 100 MG/DAILY/PO
     Route: 048
     Dates: start: 20090316, end: 20090406
  2. METOPROLOL UNK [Suspect]
  3. ACTOS [Concomitant]
  4. LANTUS [Concomitant]
  5. ZESTRIL [Concomitant]
  6. ASPIRIN [Concomitant]
  7. LOVASTATIN [Concomitant]

REACTIONS (2)
  - DYSPNOEA EXERTIONAL [None]
  - INFLUENZA LIKE ILLNESS [None]
